FAERS Safety Report 7104849-6 (Version None)
Quarter: 2010Q4

REPORT INFORMATION
  Report Type: 
  Country: None (occurrence: None)
  Receive Date: 20101109
  Receipt Date: 20101029
  Transmission Date: 20110411
  Serious: Yes (Death, Life-Threatening)
  Sender: FDA-Public Use
  Company Number: 2010US004460

PATIENT
  Age: 6 Year
  Sex: Male

DRUGS (9)
  1. AMBISOME [Suspect]
     Indication: FUNGAL INFECTION
     Dosage: 60 MG, UID/QD, IV DRIP
     Route: 041
     Dates: start: 20101006, end: 20101018
  2. FUNGUARD (MICAFUNGIN) INJECTION [Suspect]
     Indication: FUNGAEMIA
     Dosage: 75 MG, UID/CD, IV  DRIP
     Route: 041
     Dates: start: 20100930, end: 20101018
  3. OMEPRAL (OMFPRAZOLE) [Concomitant]
  4. RASENAZOLIN (CEFAZOLIN SODIUM) [Concomitant]
  5. CLONAZEPAM [Concomitant]
  6. MAALOX (ALUMINIUM HYDROXIDE GEL) [Concomitant]
  7. WAKOBITAL (PHENOBARBITAL SODIUM) [Concomitant]
  8. PRODIF (FOSFLUCONAZOLE) [Concomitant]
  9. COTRIM [Concomitant]

REACTIONS (8)
  - ACUTE PRERENAL FAILURE [None]
  - CAPILLARY PERMEABILITY INCREASED [None]
  - DISSEMINATED INTRAVASCULAR COAGULATION [None]
  - DRUG INEFFECTIVE [None]
  - HYPOALBUMINAEMIA [None]
  - RENAL FAILURE [None]
  - RENAL IMPAIRMENT [None]
  - SHOCK [None]
